FAERS Safety Report 9698474 (Version 1)
Quarter: 2013Q4

REPORT INFORMATION
  Report Type: Spontaneous
  Country: US (occurrence: US)
  Receive Date: 20131120
  Receipt Date: 20131120
  Transmission Date: 20140711
  Serious: No
  Sender: FDA-Public Use
  Company Number: US-MALLINCKRODT-T201304718

PATIENT
  Age: 35 Year
  Sex: Male

DRUGS (2)
  1. GABLOFEN [Suspect]
     Indication: MUSCLE SPASTICITY
     Dosage: 380 MCG PER DAY
     Route: 037
  2. GABLOFEN [Suspect]
     Dosage: 300 MCG PER DAY
     Route: 037

REACTIONS (2)
  - Underdose [Unknown]
  - Pruritus [Unknown]
